FAERS Safety Report 16153394 (Version 1)
Quarter: 2019Q2

REPORT INFORMATION
  Report Type: Spontaneous
  Country: FR (occurrence: FR)
  Receive Date: 20190403
  Receipt Date: 20190403
  Transmission Date: 20190711
  Serious: Yes (Other)
  Sender: FDA-Public Use
  Company Number: FR-SUN PHARMACEUTICAL INDUSTRIES LTD-2019RR-203882

PATIENT
  Age: 80 Year
  Sex: Female

DRUGS (1)
  1. LOPERAMIDE [Suspect]
     Active Substance: LOPERAMIDE
     Indication: GASTROINTESTINAL MOTILITY DISORDER
     Dosage: ()
     Route: 048
     Dates: start: 19931201, end: 20190118

REACTIONS (1)
  - Drug dependence [Not Recovered/Not Resolved]
